FAERS Safety Report 20406865 (Version 1)
Quarter: 2022Q1

REPORT INFORMATION
  Report Type: Spontaneous
  Country: US (occurrence: None)
  Receive Date: 20220131
  Receipt Date: 20220131
  Transmission Date: 20220424
  Serious: Yes (Other)
  Sender: FDA-Public Use
  Company Number: None

PATIENT
  Age: 50 Year
  Sex: Male

DRUGS (7)
  1. STELARA [Suspect]
     Active Substance: USTEKINUMAB
     Indication: Crohn^s disease
     Route: 058
     Dates: start: 20210122
  2. CHLORHEXIDINE GLUCONATE [Concomitant]
     Active Substance: CHLORHEXIDINE GLUCONATE
  3. IBUPROFEN [Concomitant]
     Active Substance: IBUPROFEN
  4. PREDNISONE [Concomitant]
     Active Substance: PREDNISONE
  5. STELARA [Concomitant]
     Active Substance: USTEKINUMAB
  6. SUPREP BOWEL SOL PREP KIT [Concomitant]
  7. UDENYCA [Concomitant]
     Active Substance: PEGFILGRASTIM-CBQV

REACTIONS (1)
  - Neoplasm malignant [None]

NARRATIVE: CASE EVENT DATE: 20211014
